FAERS Safety Report 13668968 (Version 3)
Quarter: 2020Q1

REPORT INFORMATION
  Report Type: Spontaneous
  Country: FR (occurrence: FR)
  Receive Date: 20170620
  Receipt Date: 20200205
  Transmission Date: 20200409
  Serious: Yes (Hospitalization, Other)
  Sender: FDA-Public Use
  Company Number: FR-PFIZER INC-2017257147

PATIENT
  Age: 44 Year
  Sex: Male

DRUGS (36)
  1. SALAZOPYRINE [Suspect]
     Active Substance: SULFASALAZINE
     Dosage: 500 MG, 2X/DAY
     Route: 048
     Dates: start: 20170507, end: 20170514
  2. CEFAZOLINE MYLAN [Suspect]
     Active Substance: CEFAZOLIN SODIUM
     Dosage: 8 G, DAILY
     Route: 042
     Dates: start: 20170505, end: 201705
  3. PAROXETIN BASICS [Suspect]
     Active Substance: PAROXETINE
     Indication: DEPRESSION
     Dosage: 20 MG, 1X/DAY
     Route: 048
     Dates: start: 20170508
  4. TIORFAN [Suspect]
     Active Substance: RACECADOTRIL
     Indication: DIARRHOEA
     Dosage: 1 DF, 3X/DAY
     Route: 048
     Dates: start: 20170506, end: 20170516
  5. SPECIAFOLDINE [Concomitant]
     Active Substance: FOLIC ACID
     Dosage: 5 MG, 1X/DAY
  6. COUMADINE [Concomitant]
     Active Substance: WARFARIN SODIUM
     Dosage: 4 MG, 1X/DAY
  7. SUBUTEX [Concomitant]
     Active Substance: BUPRENORPHINE HYDROCHLORIDE
     Dosage: 8 MG, 2X/DAY
  8. INIPOMP [Concomitant]
     Active Substance: PANTOPRAZOLE SODIUM
     Dosage: 20 MG, DAILY
  9. CEFAZOLINE MYLAN [Suspect]
     Active Substance: CEFAZOLIN SODIUM
     Dosage: 500 MG, DAILY
     Route: 042
     Dates: start: 201705, end: 20170515
  10. OXYCODONE [Suspect]
     Active Substance: OXYCODONE
     Indication: INTERVERTEBRAL DISCITIS
     Dosage: UNK
     Route: 048
     Dates: start: 20170507
  11. INEXIUM [Suspect]
     Active Substance: ESOMEPRAZOLE
     Dosage: 1 DF, 1X/DAY
     Route: 048
     Dates: start: 20170505
  12. FORTIMEL [Concomitant]
     Active Substance: DIETARY SUPPLEMENT
     Dosage: 6 DF, DAILY
  13. AMIKACIN. [Concomitant]
     Active Substance: AMIKACIN
     Indication: INTERVERTEBRAL DISCITIS
     Dosage: UNK
     Dates: start: 201705, end: 20170503
  14. LEVOFLOXACINE ARROW [Suspect]
     Active Substance: LEVOFLOXACIN
     Dosage: 1 G, DAILY
     Route: 048
     Dates: start: 20170504, end: 201705
  15. KARDEGIC [Suspect]
     Active Substance: ASPIRIN DL-LYSINE
     Dosage: 75 MG, 1X/DAY
     Route: 048
     Dates: start: 20170507, end: 20170514
  16. TERCIAN [Concomitant]
     Active Substance: CYAMEMAZINE
     Dosage: 3 GTT, 3X/DAY
  17. CEFAZOLINE MYLAN [Suspect]
     Active Substance: CEFAZOLIN SODIUM
     Indication: INTERVERTEBRAL DISCITIS
     Dosage: 3.5 G, DAILY
     Route: 042
     Dates: start: 20170503, end: 20170503
  18. HYDROCORTISONE. [Concomitant]
     Active Substance: HYDROCORTISONE
     Dosage: 20 MG, 1X/DAY
  19. CACIT D3 [Concomitant]
     Active Substance: CALCIUM\CHOLECALCIFEROL
     Dosage: 1 DF, 1X/DAY
  20. TAREG [Concomitant]
     Active Substance: VALSARTAN
     Dosage: 80 MG, 1X/DAY
  21. OXAZEPAM. [Suspect]
     Active Substance: OXAZEPAM
     Indication: ANXIETY
     Dosage: 25 MG, 2X/DAY
     Route: 048
     Dates: start: 201705
  22. NIQUITIN [Suspect]
     Active Substance: NICOTINE
     Indication: EX-TOBACCO USER
     Dosage: 14 MG, 1X/DAY
     Route: 062
     Dates: start: 20170508
  23. VITAMIN B1 AND B6 [Concomitant]
     Active Substance: PYRIDOXINE HYDROCHLORIDE\THIAMINE HYDROCHLORIDE
     Dosage: UNK
     Dates: start: 201705
  24. LEVOFLOXACINE ARROW [Suspect]
     Active Substance: LEVOFLOXACIN
     Indication: INTERVERTEBRAL DISCITIS
     Dosage: 500 MG, DAILY
     Route: 048
     Dates: start: 20170503, end: 20170503
  25. LEVOFLOXACINE ARROW [Suspect]
     Active Substance: LEVOFLOXACIN
     Dosage: 125 MG, DAILY
     Route: 048
     Dates: start: 201705
  26. HALOPERIDOL. [Concomitant]
     Active Substance: HALOPERIDOL
     Dosage: UNK
     Dates: start: 201705
  27. KARDEGIC [Suspect]
     Active Substance: ASPIRIN DL-LYSINE
     Indication: CARDIOVASCULAR EVENT PROPHYLAXIS
     Dosage: 160 MG, 1X/DAY
     Route: 048
     Dates: end: 20170501
  28. PARACETAMOL [Concomitant]
     Active Substance: ACETAMINOPHEN
     Dosage: 1 G, 3X/DAY
  29. VALIUM [Concomitant]
     Active Substance: DIAZEPAM
     Dosage: 10 MG, 3X/DAY
  30. EBASTINE [Concomitant]
     Active Substance: EBASTINE
     Dosage: UNK UNK, 1X/DAY
  31. PIPERACILLIN AND TAZOBACTAM [Concomitant]
     Active Substance: PIPERACILLIN SODIUM\TAZOBACTAM SODIUM
     Indication: INTERVERTEBRAL DISCITIS
     Dosage: UNK
     Dates: start: 201705, end: 20170503
  32. VANCOMYCIN [Concomitant]
     Active Substance: VANCOMYCIN
     Indication: INTERVERTEBRAL DISCITIS
     Dosage: UNK
     Dates: start: 201705, end: 20170503
  33. SALAZOPYRINE [Suspect]
     Active Substance: SULFASALAZINE
     Indication: PSORIATIC ARTHROPATHY
     Dosage: 1000 MG, 2X/DAY
     Route: 048
     Dates: end: 20170501
  34. CEFAZOLINE MYLAN [Suspect]
     Active Substance: CEFAZOLIN SODIUM
     Dosage: 7.7 G, DAILY
     Route: 042
     Dates: start: 20170504, end: 20170504
  35. HYDROCORTISONE. [Concomitant]
     Active Substance: HYDROCORTISONE
     Dosage: 30 MG, 1X/DAY
  36. FORLAX [Concomitant]
     Active Substance: POLYETHYLENE GLYCOL 4000
     Dosage: 2 DF, 1X/DAY

REACTIONS (1)
  - Renal failure [Recovered/Resolved with Sequelae]

NARRATIVE: CASE EVENT DATE: 20170510
